FAERS Safety Report 6687846-4 (Version None)
Quarter: 2010Q2

REPORT INFORMATION
  Report Type: 
  Country: None (occurrence: None)
  Receive Date: 20100409
  Receipt Date: 20090421
  Transmission Date: 20101027
  Serious: Yes (Other)
  Sender: FDA-Public Use
  Company Number: AE  2009-063

PATIENT
  Age: 53 Year
  Sex: Male

DRUGS (7)
  1. FAZACLO ODT [Suspect]
     Indication: SCHIZOPHRENIA
     Dosage: 400 MG DAILY PO
     Route: 048
     Dates: start: 20080912, end: 20090416
  2. ASPIRIN [Concomitant]
  3. LEXAPRO [Concomitant]
  4. PRILOSEC [Concomitant]
  5. ZYPREXA [Concomitant]
  6. FLOMAX [Concomitant]
  7. DIVALPROIC ACID [Concomitant]

REACTIONS (1)
  - AGRANULOCYTOSIS [None]
